FAERS Safety Report 6294647-8 (Version None)
Quarter: 2009Q3

REPORT INFORMATION
  Report Type: 
  Country: None (occurrence: None)
  Receive Date: 20090803
  Receipt Date: 20090721
  Transmission Date: 20100115
  Serious: Yes (Other)
  Sender: FDA-Public Use
  Company Number: US-MYLANLABS-2009S1013042

PATIENT
  Sex: Male

DRUGS (1)
  1. RISPERIDONE TABLETS USP [Suspect]
     Route: 048

REACTIONS (5)
  - DISTURBANCE IN ATTENTION [None]
  - DRUG INEFFECTIVE [None]
  - MENTAL IMPAIRMENT [None]
  - MOOD SWINGS [None]
  - SUICIDAL IDEATION [None]
